FAERS Safety Report 6823914-1 (Version None)
Quarter: 2010Q3

REPORT INFORMATION
  Report Type: 
  Country: None (occurrence: None)
  Receive Date: 20100708
  Receipt Date: 20060921
  Transmission Date: 20110219
  Serious: No
  Sender: FDA-Public Use
  Company Number: US-PFIZER INC-2006114631

PATIENT
  Sex: Male
  Weight: 74.39 kg

DRUGS (3)
  1. CHANTIX [Suspect]
     Indication: EX-TOBACCO USER
     Dates: start: 20060915
  2. NEXIUM [Concomitant]
  3. ANTIBIOTICS [Concomitant]
     Dates: start: 20060914

REACTIONS (2)
  - ABDOMINAL DISTENSION [None]
  - NAUSEA [None]
